FAERS Safety Report 17505758 (Version 1)
Quarter: 2020Q1

REPORT INFORMATION
  Report Type: Spontaneous
  Country: US (occurrence: US)
  Receive Date: 20200306
  Receipt Date: 20200306
  Transmission Date: 20200409
  Serious: Yes (Other)
  Sender: FDA-Public Use
  Company Number: US-DRREDDYS-USA/USA/20/0120221

PATIENT
  Sex: Female

DRUGS (1)
  1. HABITROL [Suspect]
     Active Substance: NICOTINE
     Indication: TOBACCO USER
     Route: 062

REACTIONS (11)
  - Inappropriate schedule of product administration [Unknown]
  - Anxiety [Unknown]
  - Confusional state [Unknown]
  - Malaise [Unknown]
  - Vision blurred [Unknown]
  - Palpitations [Unknown]
  - Hypertension [Unknown]
  - Dizziness [Not Recovered/Not Resolved]
  - Mental disorder [Unknown]
  - Respiratory tract infection [Unknown]
  - Fatigue [Unknown]
